FAERS Safety Report 18821561 (Version 3)
Quarter: 2021Q1

REPORT INFORMATION
  Report Type: Spontaneous
  Country: US (occurrence: US)
  Receive Date: 20210202
  Receipt Date: 20210330
  Transmission Date: 20210419
  Serious: Yes (Other)
  Sender: FDA-Public Use
  Company Number: US-PFIZER INC-2021082369

PATIENT
  Age: 77 Year
  Sex: Female
  Weight: 79.83 kg

DRUGS (3)
  1. PREMARIN [Suspect]
     Active Substance: ESTROGENS, CONJUGATED
     Indication: VULVOVAGINAL DRYNESS
     Dosage: 0.5 G, 2X/WEEK (TWICE A WEEK IF SEXUALLY ACTIVE; ONCE A WEEK IF SHE IS NOT)
     Route: 067
     Dates: start: 201901
  2. PREMARIN [Suspect]
     Active Substance: ESTROGENS, CONJUGATED
     Dosage: 0.5 G, WEEKLY (TWICE A WEEK IF SEXUALLY ACTIVE; ONCE A WEEK IF SHE IS NOT)
     Route: 067
     Dates: start: 201901
  3. POLYETHYLENE GLYCOL [MACROGOL] [Suspect]
     Active Substance: POLYETHYLENE GLYCOLS
     Dosage: UNK

REACTIONS (5)
  - Vulvovaginal mycotic infection [Unknown]
  - Kidney infection [Recovered/Resolved]
  - Blister [Unknown]
  - Allergic reaction to excipient [Unknown]
  - Off label use [Unknown]

NARRATIVE: CASE EVENT DATE: 201901
